FAERS Safety Report 9489418 (Version 2)
Quarter: 2013Q3

REPORT INFORMATION
  Report Type: Spontaneous
  Country: US (occurrence: US)
  Receive Date: 20130725
  Receipt Date: 20130920
  Transmission Date: 20140515
  Serious: Yes (Hospitalization)
  Sender: FDA-Public Use
  Company Number: US-GLAXOSMITHKLINE-A1001567A

PATIENT
  Age: 50 Year
  Sex: Male
  Weight: 151.4 kg

DRUGS (1)
  1. AVANDIA [Suspect]
     Indication: DIABETES MELLITUS
     Dosage: 8MG PER DAY
     Route: 048
     Dates: start: 20000710, end: 20070316

REACTIONS (2)
  - Myocardial infarction [Unknown]
  - Cardiac operation [Unknown]
